FAERS Safety Report 25915513 (Version 2)
Quarter: 2025Q4

REPORT INFORMATION
  Report Type: Spontaneous
  Country: EU (occurrence: EU)
  Receive Date: 20251013
  Receipt Date: 20251021
  Transmission Date: 20260118
  Serious: Yes (Hospitalization)
  Sender: PFIZER
  Company Number: EU-ROCHE-1236597

PATIENT
  Age: 73 Year
  Sex: Female
  Weight: 55.2 kg

DRUGS (8)
  1. CARBOPLATIN [Suspect]
     Active Substance: CARBOPLATIN
     Indication: Breast cancer
     Dosage: 438 MG, EVERY 3 WEEKS
     Route: 042
  2. DOCETAXEL [Suspect]
     Active Substance: DOCETAXEL
     Indication: Breast cancer
     Dosage: LAST DOSE PRIOR TO SAE WAS 05MAR2013
     Route: 042
     Dates: start: 20130212, end: 20130305
  3. TRASTUZUMAB [Suspect]
     Active Substance: TRASTUZUMAB
     Indication: Breast cancer
     Dosage: LOADING DOSE AS PER PROTOCOLFREQUENCY TEXT: CYCLE 1 ONLY AS PER PROTOCOL
     Route: 042
     Dates: start: 20130212
  4. TRASTUZUMAB [Suspect]
     Active Substance: TRASTUZUMAB
     Dosage: LAST DOSE PRIOR TO SAE WAS 13MAY2013, MAINTENANCE DOSE
     Route: 042
     Dates: end: 20130513
  5. PERTUZUMAB [Suspect]
     Active Substance: PERTUZUMAB
     Indication: Breast cancer
     Dosage: LOADING DOSE; FREQUENCY TEXT: CYCLE 1 ONLY AS PER PROTOCOL
     Route: 042
     Dates: start: 20130212
  6. PERTUZUMAB [Suspect]
     Active Substance: PERTUZUMAB
     Dosage: MAINTENANCE DOSE AS PER PROTOCOL; LAST DOSE PRIOR TO SAE ON 08APR2013
     Route: 042
     Dates: start: 20130305, end: 20130408
  7. AQUAPHOR (XIPAMIDE) [Concomitant]
     Active Substance: XIPAMIDE
     Indication: Atrial fibrillation
     Dosage: 10 MG
     Dates: start: 20130323
  8. TORSEMIDE [Concomitant]
     Active Substance: TORSEMIDE
     Indication: Atrial fibrillation
     Dosage: 45 MG
     Dates: start: 20130323

REACTIONS (2)
  - Pleural effusion [Recovered/Resolved]
  - Off label use [Unknown]

NARRATIVE: CASE EVENT DATE: 20130603
